FAERS Safety Report 15589739 (Version 1)
Quarter: 2018Q4

REPORT INFORMATION
  Report Type: Spontaneous
  Country: ES (occurrence: ES)
  Receive Date: 20181106
  Receipt Date: 20181106
  Transmission Date: 20190205
  Serious: Yes (Other)
  Sender: FDA-Public Use
  Company Number: ES-SUN PHARMACEUTICAL INDUSTRIES LTD-2018RR-190408

PATIENT
  Age: 48 Year
  Sex: Female

DRUGS (1)
  1. OMEPRAZOLE. [Suspect]
     Active Substance: OMEPRAZOLE
     Indication: PRODUCT USED FOR UNKNOWN INDICATION
     Dosage: 20 MG, DAILY
     Route: 065

REACTIONS (5)
  - Toxic skin eruption [Recovered/Resolved]
  - Skin toxicity [Recovered/Resolved]
  - Intentional product misuse [Unknown]
  - Symmetrical drug-related intertriginous and flexural exanthema [Recovered/Resolved]
  - Overdose [Unknown]
